FAERS Safety Report 6362301-X (Version None)
Quarter: 2009Q3

REPORT INFORMATION
  Report Type: 
  Country: None (occurrence: None)
  Receive Date: 20090918
  Receipt Date: 20090825
  Transmission Date: 20100115
  Serious: No
  Sender: FDA-Public Use
  Company Number: US-ABBOTT-09P-163-0593475-00

PATIENT
  Sex: Male
  Weight: 95.34 kg

DRUGS (8)
  1. HUMIRA [Suspect]
     Indication: RHEUMATOID ARTHRITIS
     Route: 058
     Dates: start: 20060101, end: 20090801
  2. METHOTREXATE [Concomitant]
     Indication: RHEUMATOID ARTHRITIS
     Route: 048
     Dates: start: 20060801
  3. SYNTHROID [Concomitant]
     Indication: HYPOTHYROIDISM
     Route: 048
  4. PIROXICAM [Concomitant]
     Indication: ARTHRALGIA
     Route: 048
  5. OMEPRAZOLE [Concomitant]
     Indication: PROPHYLAXIS
     Route: 048
  6. OMEPRAZOLE [Concomitant]
     Indication: ADVERSE DRUG REACTION
  7. FOLIC ACID [Concomitant]
     Indication: VITAMIN SUPPLEMENTATION
     Route: 048
  8. VITAMIN D [Concomitant]
     Indication: VITAMIN SUPPLEMENTATION
     Route: 048

REACTIONS (3)
  - ARTHRALGIA [None]
  - MYALGIA [None]
  - RESPIRATORY TRACT INFECTION [None]
